FAERS Safety Report 16334276 (Version 1)
Quarter: 2019Q2

REPORT INFORMATION
  Report Type: Spontaneous
  Country: IT (occurrence: IT)
  Receive Date: 20190520
  Receipt Date: 20190520
  Transmission Date: 20190711
  Serious: Yes (Other)
  Sender: FDA-Public Use
  Company Number: IT-PFIZER INC-2019204677

PATIENT
  Sex: Female

DRUGS (5)
  1. EUTHYROX [Suspect]
     Active Substance: LEVOTHYROXINE SODIUM
     Indication: THYROID CANCER
     Dosage: 75 UG, UNK
     Route: 048
  2. CABOZANTINIB [Suspect]
     Active Substance: CABOZANTINIB
     Indication: THYROID CANCER
     Dosage: 60 MG, UNK
  3. SUTENT [Suspect]
     Active Substance: SUNITINIB MALATE
     Indication: THYROID CANCER
     Dosage: UNK
  4. CABOZANTINIB [Suspect]
     Active Substance: CABOZANTINIB
     Dosage: THERAPY REINTRODUCED ON 11 MAR (UNSPECIFIED YEAR)
  5. CABOZANTINIB [Suspect]
     Active Substance: CABOZANTINIB
     Dosage: 5 WEEKS WITHOUT MEDICATION AND DOSE REDUCED ON 28 DEC (UNSPECIFIED YEAR) TO 17 FEB (UNSPECIFIED Y...

REACTIONS (6)
  - Hepatotoxicity [Unknown]
  - Fatigue [Unknown]
  - Diarrhoea [Unknown]
  - Product use in unapproved indication [Unknown]
  - Bronchial obstruction [Unknown]
  - Off label use [Unknown]
